FAERS Safety Report 7275762 (Version 17)
Quarter: 2014Q1

REPORT INFORMATION
  Report Type: Spontaneous
  Country: US (occurrence: US)
  Receive Date: 20100211
  Receipt Date: 20140128
  Transmission Date: 20141002
  Serious: Yes (Hospitalization, Disabling, Other)
  Sender: FDA-Public Use
  Company Number: PHEH2010US01705

PATIENT
  Sex: Female

DRUGS (27)
  1. AREDIA [Suspect]
     Indication: PLASMA CELL MYELOMA
     Dosage: 90 MG, QMO
     Route: 041
     Dates: start: 200401, end: 200512
  2. ZOMETA [Suspect]
     Indication: PLASMA CELL MYELOMA
     Route: 042
  3. DECADRON                                /CAN/ [Concomitant]
  4. THALIDOMIDE [Concomitant]
     Indication: PLASMA CELL MYELOMA
  5. HYDROCHLOROTHIAZIDE [Concomitant]
  6. COUMADINE [Concomitant]
  7. ZESTRIL [Concomitant]
  8. ATENOLOL [Concomitant]
  9. NORVASC                                 /GRC/ [Concomitant]
  10. GLUCOPHAGE [Concomitant]
     Dosage: 500 MG, QD
  11. DIAMICRON [Concomitant]
     Dosage: 30 MG, QD
  12. LASIX [Concomitant]
     Dosage: 20 MG, QD
  13. LASIX [Concomitant]
     Dosage: 40 MG, QD
  14. METOPROLOL [Concomitant]
  15. ROCALTROL [Concomitant]
     Dosage: 0.25 MG, QD
  16. LEVAQUIN [Concomitant]
     Dosage: 750 MG, QD
  17. TOLAZAMIDE [Concomitant]
  18. PENICILLIN V POTASSIUM [Concomitant]
     Dosage: 500 MG, Q6H
  19. PERIDEX [Concomitant]
     Dosage: 10 ML, TID
  20. PRAVASTATIN SODIUM [Concomitant]
     Dosage: 20 MG, QD
     Route: 048
  21. FISH OIL [Concomitant]
     Dosage: 1000 MG, QID
  22. PRILOSEC [Concomitant]
  23. ELEQUINE [Concomitant]
     Dosage: 750 MG, QD
  24. BACTRIM [Concomitant]
  25. TYLENOL [Concomitant]
  26. VITAMIN D [Concomitant]
  27. CALCIUM [Concomitant]

REACTIONS (91)
  - Osteonecrosis of jaw [Recovered/Resolved]
  - Pain [Unknown]
  - Injury [Unknown]
  - Disability [Unknown]
  - Anxiety [Unknown]
  - Pain in jaw [Unknown]
  - Anhedonia [Unknown]
  - Swelling [Unknown]
  - Oral disorder [Unknown]
  - Oropharyngeal pain [Unknown]
  - Neck pain [Unknown]
  - Pneumonia [Unknown]
  - Fatigue [Unknown]
  - Intervertebral disc protrusion [Unknown]
  - Intervertebral disc compression [Unknown]
  - Tenderness [Unknown]
  - Bone pain [Recovered/Resolved]
  - Muscular weakness [Unknown]
  - Hyperlipidaemia [Unknown]
  - Renal failure [Unknown]
  - Hyperparathyroidism [Unknown]
  - Metabolic acidosis [Unknown]
  - Anaemia [Unknown]
  - Pulmonary embolism [Unknown]
  - Neuropathy peripheral [Unknown]
  - Proteinuria [Unknown]
  - Spinal osteoarthritis [Unknown]
  - Kyphosis [Unknown]
  - Osteolysis [Unknown]
  - Diverticulum [Unknown]
  - Tachycardia [Unknown]
  - Haemorrhoids [Unknown]
  - Dyspnoea [Unknown]
  - Chest discomfort [Unknown]
  - Dyslipidaemia [Unknown]
  - Hypokalaemia [Unknown]
  - Renal cancer [Unknown]
  - Cushingoid [Unknown]
  - Conjunctivitis [Unknown]
  - Back pain [Unknown]
  - Nasal congestion [Unknown]
  - Sinusitis [Unknown]
  - Exposed bone in jaw [Unknown]
  - Loose tooth [Unknown]
  - Infection [Unknown]
  - Pathological fracture [Unknown]
  - Cellulitis [Unknown]
  - Cough [Unknown]
  - Chest pain [Unknown]
  - Bone fistula [Unknown]
  - Purulent discharge [Unknown]
  - Aphagia [Unknown]
  - Bone loss [Unknown]
  - Tooth erosion [Unknown]
  - Osteomyelitis [Unknown]
  - Constipation [Unknown]
  - Cardiomegaly [Unknown]
  - Pleural effusion [Unknown]
  - Lung infiltration [Unknown]
  - Hyperplasia [Unknown]
  - Breast mass [Unknown]
  - Breast cyst [Unknown]
  - Vascular calcification [Unknown]
  - Osteopenia [Unknown]
  - Spondylolisthesis [Unknown]
  - Arthropathy [Unknown]
  - Intervertebral disc space narrowing [Unknown]
  - Lordosis [Unknown]
  - Compression fracture [Unknown]
  - Phlebolith [Unknown]
  - Abdominal pain [Unknown]
  - Neck mass [Unknown]
  - Pulmonary mass [Unknown]
  - Paraesthesia [Unknown]
  - Onychomycosis [Unknown]
  - Syncope [Unknown]
  - Atelectasis [Unknown]
  - Fall [Unknown]
  - Neck injury [Unknown]
  - Stress [Unknown]
  - Spinal deformity [Unknown]
  - Renal failure chronic [Unknown]
  - Hyperkalaemia [Unknown]
  - Hypercholesterolaemia [Unknown]
  - Interstitial lung disease [Unknown]
  - Aortic calcification [Unknown]
  - Aortic arteriosclerosis [Unknown]
  - Osteoarthritis [Unknown]
  - Chondrocalcinosis [Unknown]
  - Gingival bleeding [Unknown]
  - Bone abscess [Unknown]
